FAERS Safety Report 15076454 (Version 1)
Quarter: 2018Q2

REPORT INFORMATION
  Report Type: Spontaneous
  Country: IT (occurrence: IT)
  Receive Date: 20180627
  Receipt Date: 20180627
  Transmission Date: 20180711
  Serious: Yes (Life-Threatening)
  Sender: FDA-Public Use
  Company Number: IT-JNJFOC-20180631868

PATIENT
  Age: 45 Year
  Sex: Male
  Weight: 93.97 kg

DRUGS (7)
  1. BISOPROLOL [Concomitant]
     Active Substance: BISOPROLOL
     Route: 065
  2. CANRENOIC ACID [Concomitant]
     Active Substance: CANRENOIC ACID
     Route: 065
  3. RAMIPRIL. [Concomitant]
     Active Substance: RAMIPRIL
     Route: 065
  4. ALLOPURINOL. [Concomitant]
     Active Substance: ALLOPURINOL
     Route: 065
  5. IVABRADINE [Concomitant]
     Active Substance: IVABRADINE
     Route: 065
  6. RIVAROXABAN [Suspect]
     Active Substance: RIVAROXABAN
     Indication: PRODUCT USED FOR UNKNOWN INDICATION
     Route: 048
  7. LASIX [Concomitant]
     Active Substance: FUROSEMIDE
     Route: 065

REACTIONS (1)
  - Cardiac ventricular thrombosis [Not Recovered/Not Resolved]

NARRATIVE: CASE EVENT DATE: 20180621
